FAERS Safety Report 7218092-3 (Version None)
Quarter: 2010Q4

REPORT INFORMATION
  Report Type: 
  Country: None (occurrence: None)
  Receive Date: 20101227
  Receipt Date: 20101216
  Transmission Date: 20110411
  Serious: Yes (Hospitalization)
  Sender: FDA-Public Use
  Company Number: 2010SP043298

PATIENT
  Age: 64 Year
  Sex: Female

DRUGS (12)
  1. MIRTAZAPINE [Suspect]
     Indication: DEPRESSION
     Dosage: 30 MG QD, PO
     Dates: start: 20100720, end: 20100805
  2. CARBOPLATIN [Concomitant]
  3. PACLITAXEL [Concomitant]
  4. BEVACIZUMAB [Concomitant]
  5. LOXOPROFEN SODIUM [Concomitant]
  6. HYDRATE [Concomitant]
  7. REBAMIPIDE [Concomitant]
  8. LANSOPRAZOLE [Concomitant]
  9. GRANISETRON HYDROCHLORIDE [Concomitant]
  10. DEXAMETHASONE PHOSPHATE [Concomitant]
  11. RANITIDINE HYDROCHLORIDE [Concomitant]
  12. CEFOZOPRAN HYDROCHLORIDE [Concomitant]

REACTIONS (8)
  - DECREASED APPETITE [None]
  - HEADACHE [None]
  - INAPPROPRIATE ANTIDIURETIC HORMONE SECRETION [None]
  - LUNG CANCER METASTATIC [None]
  - MALAISE [None]
  - MALIGNANT NEOPLASM PROGRESSION [None]
  - SENSATION OF HEAVINESS [None]
  - VOMITING [None]
